FAERS Safety Report 22061050 (Version 1)
Quarter: 2023Q1

REPORT INFORMATION
  Report Type: Spontaneous
  Country: CN (occurrence: CN)
  Receive Date: 20230303
  Receipt Date: 20230303
  Transmission Date: 20230418
  Serious: Yes (Other)
  Sender: FDA-Public Use
  Company Number: CN-PFIZER INC-PV202300039312

PATIENT
  Age: 14 Year
  Sex: Male
  Weight: 42 kg

DRUGS (2)
  1. AZITHROMYCIN [Suspect]
     Active Substance: AZITHROMYCIN
     Indication: Bronchitis
     Dosage: 0.25 G, 1X/DAY
     Route: 048
     Dates: start: 20230225, end: 20230226
  2. ZU KA MU [Concomitant]
     Indication: Bronchitis
     Dosage: 12 G, 3X/DAY
     Route: 048
     Dates: start: 20230225, end: 20230226

REACTIONS (3)
  - Erythema [Recovering/Resolving]
  - Skin swelling [Recovering/Resolving]
  - Nausea [Recovering/Resolving]

NARRATIVE: CASE EVENT DATE: 20230226
